FAERS Safety Report 16755375 (Version 1)
Quarter: 2019Q3

REPORT INFORMATION
  Report Type: Spontaneous
  Country: CN (occurrence: CN)
  Receive Date: 20190829
  Receipt Date: 20190829
  Transmission Date: 20191005
  Serious: Yes (Hospitalization, Disabling)
  Sender: FDA-Public Use
  Company Number: CN-ASTRAZENECA-2019SF21995

PATIENT
  Age: 77 Year
  Sex: Male
  Weight: 62 kg

DRUGS (5)
  1. SHEXIANG ZHUIFENG ANALGESIC OINTMENT [Suspect]
     Active Substance: HERBALS\MENTHOL\METHYL SALICYLATE
     Indication: PAIN IN EXTREMITY
     Dosage: ONE PATCH EVERY 2 DAYS
     Route: 065
     Dates: start: 20190728, end: 20190730
  2. SPIRONOLACTONE. [Suspect]
     Active Substance: SPIRONOLACTONE
     Indication: OEDEMA PERIPHERAL
     Route: 048
     Dates: start: 20190725, end: 20190729
  3. TICAGRELOR. [Suspect]
     Active Substance: TICAGRELOR
     Indication: PLATELET AGGREGATION
     Route: 048
     Dates: start: 20190725, end: 20190729
  4. FUROSEMIDE. [Suspect]
     Active Substance: FUROSEMIDE
     Indication: OEDEMA PERIPHERAL
     Route: 048
     Dates: start: 20190725, end: 20190729
  5. CELECOXIB. [Suspect]
     Active Substance: CELECOXIB
     Indication: PAIN IN EXTREMITY
     Dosage: 0.2GR DAILY
     Route: 048
     Dates: start: 20190728, end: 20190803

REACTIONS (2)
  - Ecchymosis [Recovering/Resolving]
  - Pain [Recovering/Resolving]

NARRATIVE: CASE EVENT DATE: 20190730
